FAERS Safety Report 8507591-X (Version None)
Quarter: 2012Q3

REPORT INFORMATION
  Report Type: 
  Country: None (occurrence: None)
  Receive Date: 20120713
  Receipt Date: 20120706
  Transmission Date: 20120928
  Serious: Yes (Other)
  Sender: FDA-Public Use
  Company Number: US-009507513-1207USA001291

PATIENT

DRUGS (4)
  1. PEGASYS [Concomitant]
     Indication: HEPATITIS C
     Dosage: UNK
     Dates: start: 20120429
  2. VICTRELIS [Suspect]
     Indication: HEPATITIS C
     Dosage: UNK
     Dates: start: 20120527
  3. REBETOL [Suspect]
     Indication: HEPATITIS C
     Dosage: UNK
     Dates: start: 20120429
  4. REBETOL [Suspect]
     Dosage: UNK

REACTIONS (8)
  - SOMNOLENCE [None]
  - GAIT DISTURBANCE [None]
  - PAIN [None]
  - HAEMOGLOBIN DECREASED [None]
  - DISTURBANCE IN ATTENTION [None]
  - DYSSTASIA [None]
  - DYSGEUSIA [None]
  - MEMORY IMPAIRMENT [None]
